FAERS Safety Report 9202722 (Version 1)
Quarter: 2013Q2

REPORT INFORMATION
  Report Type: Spontaneous
  Country: GB (occurrence: GB)
  Receive Date: 20130401
  Receipt Date: 20130401
  Transmission Date: 20140414
  Serious: Yes (Life-Threatening)
  Sender: FDA-Public Use
  Company Number: GB-PFIZER INC-GB9000811JUN2002

PATIENT
  Age: 66 Year
  Sex: Male
  Weight: 90 kg

DRUGS (3)
  1. IBUPROFEN [Suspect]
     Indication: PROSTATIC DISORDER
     Dosage: 400MG ONCE
     Route: 048
     Dates: start: 20020515, end: 20020515
  2. ATROVENT [Concomitant]
     Route: 055
  3. SALBUTAMOL [Concomitant]
     Indication: ASTHMA
     Dosage: UNK
     Route: 055
     Dates: start: 200105

REACTIONS (1)
  - Respiratory arrest [Recovered/Resolved]
